FAERS Safety Report 5742266-1 (Version None)
Quarter: 2008Q2

REPORT INFORMATION
  Report Type: 
  Country: None (occurrence: None)
  Receive Date: 20080519
  Receipt Date: 20080512
  Transmission Date: 20081010
  Serious: Yes (Other)
  Sender: FDA-Public Use
  Company Number: PHBS2008NO03053

PATIENT
  Age: 15 Year
  Sex: Male

DRUGS (2)
  1. EMSELEX EXTENDED RELEASE [Suspect]
     Indication: BLADDER SPASM
     Dosage: 7.5 MG, QD
     Route: 048
  2. OMNIC [Suspect]

REACTIONS (6)
  - ABDOMINAL RIGIDITY [None]
  - BLADDER SPASM [None]
  - CONDITION AGGRAVATED [None]
  - DRUG INEFFECTIVE [None]
  - HAEMATURIA [None]
  - VASCULAR PSEUDOANEURYSM [None]
